FAERS Safety Report 10993373 (Version 2)
Quarter: 2015Q2

REPORT INFORMATION
  Report Type: Spontaneous
  Country: FR (occurrence: FR)
  Receive Date: 20150407
  Receipt Date: 20150424
  Transmission Date: 20150821
  Serious: Yes (Disabling)
  Sender: FDA-Public Use
  Company Number: FR-ASTRAZENECA-2015SE31067

PATIENT
  Age: 68 Year
  Sex: Female

DRUGS (5)
  1. CRESTOR [Suspect]
     Active Substance: ROSUVASTATIN CALCIUM
     Indication: HYPERCHOLESTEROLAEMIA
     Route: 048
     Dates: end: 201503
  2. BISOPROLOL [Concomitant]
     Active Substance: BISOPROLOL
     Indication: STENT PLACEMENT
  3. KARDEGIC [Concomitant]
     Active Substance: ASPIRIN LYSINE
     Indication: STENT PLACEMENT
  4. COVERSYL [Concomitant]
     Active Substance: PERINDOPRIL
     Indication: STENT PLACEMENT
  5. D VITAMIN [Concomitant]
     Dosage: EVERY THREE MONTHS

REACTIONS (1)
  - Amyotrophic lateral sclerosis [Not Recovered/Not Resolved]
